FAERS Safety Report 6379010-3 (Version None)
Quarter: 2009Q3

REPORT INFORMATION
  Report Type: 
  Country: None (occurrence: None)
  Receive Date: 20090928
  Receipt Date: 20090924
  Transmission Date: 20100115
  Serious: Yes (Death, Hospitalization)
  Sender: FDA-Public Use
  Company Number: PHHY2009PT41072

PATIENT

DRUGS (4)
  1. CYCLOSPORINE [Suspect]
     Indication: RENAL TRANSPLANT
  2. BASILIXIMAB [Suspect]
     Indication: RENAL TRANSPLANT
  3. MYCOPHENOLATE MOFETIL [Suspect]
     Indication: RENAL TRANSPLANT
  4. PREDNISOLONE [Suspect]
     Indication: RENAL TRANSPLANT

REACTIONS (17)
  - BRAIN MASS [None]
  - BRAIN NEOPLASM BENIGN [None]
  - BRAIN OEDEMA [None]
  - CENTRAL NERVOUS SYSTEM LESION [None]
  - COCCIDIOIDOMYCOSIS [None]
  - FATIGUE [None]
  - FUNGAL ABSCESS CENTRAL NERVOUS SYSTEM [None]
  - GRAFT DYSFUNCTION [None]
  - GRAND MAL CONVULSION [None]
  - HAEMATURIA [None]
  - LOSS OF CONSCIOUSNESS [None]
  - PSEUDOMONAS INFECTION [None]
  - PYREXIA [None]
  - PYURIA [None]
  - SOMNOLENCE [None]
  - TRANSPLANT REJECTION [None]
  - URINARY TRACT INFECTION [None]
